FAERS Safety Report 7504924-8 (Version None)
Quarter: 2011Q2

REPORT INFORMATION
  Report Type: 
  Country: None (occurrence: None)
  Receive Date: 20110526
  Receipt Date: 20110519
  Transmission Date: 20111010
  Serious: Yes (Hospitalization)
  Sender: FDA-Public Use
  Company Number: AU-BIOGENIDEC-2011BI014026

PATIENT
  Age: 34 Year
  Sex: Female

DRUGS (2)
  1. MICROGYNON 30 [Concomitant]
     Indication: CONTRACEPTION
  2. AVONEX [Suspect]
     Indication: MULTIPLE SCLEROSIS
     Route: 030
     Dates: start: 20080301

REACTIONS (1)
  - APPENDICEAL ABSCESS [None]
